FAERS Safety Report 8513567-9 (Version None)
Quarter: 2012Q3

REPORT INFORMATION
  Report Type: 
  Country: None (occurrence: None)
  Receive Date: 20120717
  Receipt Date: 20120703
  Transmission Date: 20120928
  Serious: Yes (Hospitalization, Other)
  Sender: FDA-Public Use
  Company Number: GB-PAR PHARMACEUTICAL, INC-2012SCPR004493

PATIENT

DRUGS (3)
  1. ALPRAZOLAM [Suspect]
     Indication: PRODUCT USED FOR UNKNOWN INDICATION
     Dosage: 15 MG, UNKNOWN
     Route: 065
  2. ALPRAZOLAM [Suspect]
     Dosage: 15 MG, UNK
     Route: 065
  3. METHADON HCL TAB [Suspect]
     Indication: PRODUCT USED FOR UNKNOWN INDICATION
     Dosage: 180 MG, UNKNOWN
     Route: 065

REACTIONS (10)
  - PSYCHOMOTOR RETARDATION [None]
  - LEUKOENCEPHALOPATHY [None]
  - BRAIN HYPOXIA [None]
  - HYPOPERFUSION [None]
  - BLOOD PRESSURE SYSTOLIC DECREASED [None]
  - HYPOGLYCAEMIA [None]
  - RENAL TUBULAR NECROSIS [None]
  - PNEUMONIA ASPIRATION [None]
  - HEPATIC FAILURE [None]
  - MULTIPLE DRUG OVERDOSE [None]
